FAERS Safety Report 20803803 (Version 5)
Quarter: 2022Q4

REPORT INFORMATION
  Report Type: Report from Study
  Country: US (occurrence: US)
  Receive Date: 20220509
  Receipt Date: 20221107
  Transmission Date: 20230113
  Serious: No
  Sender: FDA-Public Use
  Company Number: US-NOVARTISTESTPH-NVSC2022US106369

PATIENT
  Sex: Male

DRUGS (1)
  1. ENTRESTO [Suspect]
     Active Substance: SACUBITRIL\VALSARTAN
     Indication: Product used for unknown indication
     Dosage: 50 MG (24/26 MG: SACUBITRIL 24.3 MG, VALSARTAN 25.7 MG), BID
     Route: 065
     Dates: start: 20220504

REACTIONS (6)
  - Stress [Unknown]
  - Tearfulness [Unknown]
  - Vision blurred [Unknown]
  - Weight increased [Unknown]
  - Blood pressure decreased [Unknown]
  - Product dose omission issue [Unknown]
